FAERS Safety Report 6448577-9 (Version None)
Quarter: 2009Q4

REPORT INFORMATION
  Report Type: 
  Country: None (occurrence: None)
  Receive Date: 20091120
  Receipt Date: 20091109
  Transmission Date: 20100525
  Serious: Yes (Hospitalization)
  Sender: FDA-Public Use
  Company Number: FR-BAYER-200938936GPV

PATIENT
  Age: 57 Year
  Sex: Female

DRUGS (13)
  1. CIFLOX [Suspect]
     Indication: PYREXIA
     Route: 042
     Dates: start: 20090220, end: 20090101
  2. ARACYTINE [Suspect]
     Indication: ACUTE MYELOID LEUKAEMIA
     Dosage: D1 AND D5
     Route: 042
     Dates: start: 20090406, end: 20090509
  3. ARACYTINE [Suspect]
     Route: 042
     Dates: start: 20090126, end: 20090101
  4. CERUBIDINE [Suspect]
     Indication: ACUTE MYELOID LEUKAEMIA
     Dosage: 75 MG AT D1
     Route: 042
     Dates: start: 20090407, end: 20090509
  5. CERUBIDINE [Suspect]
     Dosage: 5 MG AT D1;  D4 AND D7 (PROTOCOL ALPHA 0701 ARM MYLOTARG
     Route: 042
     Dates: start: 20090126, end: 20090101
  6. MYLOTARG [Suspect]
     Indication: ACUTE MYELOID LEUKAEMIA
     Route: 042
     Dates: start: 20090126, end: 20090201
  7. VFEND [Suspect]
     Indication: BRONCHOPULMONARY ASPERGILLOSIS
     Route: 048
     Dates: start: 20090303, end: 20090320
  8. AMPHOTERICIN B [Concomitant]
     Indication: BRONCHOPULMONARY ASPERGILLOSIS
     Route: 065
     Dates: end: 20090303
  9. SULFAMETHOXAZOLE AND TRIMETHOPRIM [Concomitant]
     Indication: PYREXIA
     Route: 065
     Dates: start: 20090201
  10. FUROSEMIDE [Concomitant]
     Indication: LUNG DISORDER
     Route: 065
  11. OXYGEN THERAPY [Concomitant]
     Indication: DRUG USE FOR UNKNOWN INDICATION
     Route: 065
     Dates: start: 20090220
  12. MORPHINE [Concomitant]
     Indication: DRUG USE FOR UNKNOWN INDICATION
     Route: 065
  13. VORICONAZOLE [Concomitant]
     Indication: BRONCHOPULMONARY ASPERGILLOSIS
     Route: 048
     Dates: start: 20090303, end: 20090320

REACTIONS (15)
  - AGITATION [None]
  - CEREBELLAR ATAXIA [None]
  - CHROMATOPSIA [None]
  - CONFUSIONAL STATE [None]
  - DYSAESTHESIA [None]
  - GAIT DISTURBANCE [None]
  - HYPERAESTHESIA [None]
  - IMPAIRED SELF-CARE [None]
  - MUSCULAR WEAKNESS [None]
  - MYALGIA [None]
  - NEURALGIC AMYOTROPHY [None]
  - OPTIC NEUROPATHY [None]
  - SCOTOMA [None]
  - VISUAL ACUITY REDUCED [None]
  - VISUAL IMPAIRMENT [None]
